FAERS Safety Report 19491329 (Version 1)
Quarter: 2021Q3

REPORT INFORMATION
  Report Type: Spontaneous
  Country: US (occurrence: US)
  Receive Date: 20210705
  Receipt Date: 20210705
  Transmission Date: 20211014
  Serious: Yes (Hospitalization, Other)
  Sender: FDA-Public Use
  Company Number: US-TORRENT-00011163

PATIENT
  Age: 16 Year
  Sex: Female

DRUGS (7)
  1. FLUTICASONE. [Concomitant]
     Active Substance: FLUTICASONE
     Indication: ASTHMA
     Dosage: 1 PUFF EVERY MORNING
  2. LAMOTRIGINE. [Concomitant]
     Active Substance: LAMOTRIGINE
     Indication: AFFECTIVE DISORDER
     Dosage: ON DAY 23
  3. ESCITALOPRAM [Suspect]
     Active Substance: ESCITALOPRAM OXALATE
     Indication: DEPRESSION
     Dosage: ON DAY 8 INCREASED
  4. CHLORPROMAZINE. [Concomitant]
     Active Substance: CHLORPROMAZINE
     Indication: AGITATION
     Dosage: ON DAY 16 (50MG X 2)
     Route: 048
  5. GUANFACINE. [Concomitant]
     Active Substance: GUANFACINE
     Indication: ATTENTION DEFICIT HYPERACTIVITY DISORDER
     Dosage: ADDED ON 4TH DAY OF ADMISSION
     Route: 048
  6. TRAZODONE [Concomitant]
     Active Substance: TRAZODONE HYDROCHLORIDE
     Indication: INSOMNIA
     Dosage: ON DAY 1, DAY 2, DAY 8, DAY 10, DAY 12, DAY 13, DAY 15, DAY 19 AND DAY 20.
  7. LORAZEPAM. [Concomitant]
     Active Substance: LORAZEPAM
     Indication: AGGRESSION
     Dosage: ON DAY 21
     Route: 030

REACTIONS (1)
  - Abnormal behaviour [Recovering/Resolving]
